FAERS Safety Report 8572160-2 (Version None)
Quarter: 2012Q3

REPORT INFORMATION
  Report Type: 
  Country: None (occurrence: None)
  Receive Date: 20120806
  Receipt Date: 20120730
  Transmission Date: 20120928
  Serious: Yes (Hospitalization)
  Sender: FDA-Public Use
  Company Number: BR-PFIZER INC-2012185798

PATIENT
  Age: 22 Year
  Sex: Female

DRUGS (13)
  1. PREDNISONE TAB [Suspect]
     Dosage: 30 MG/DAY
  2. PREDNISONE TAB [Suspect]
     Indication: TAKAYASU'S ARTERITIS
     Dosage: 60 MG/DAY
  3. INFLIXIMAB [Suspect]
     Indication: TAKAYASU'S ARTERITIS
     Dosage: 300 MG (3.5 MG/KG/DOSE) BI-MONTHLY
     Dates: start: 20060801, end: 20091101
  4. METHYLPREDNISOLONE ACETATE [Suspect]
     Dosage: 1000 MG
  5. PREDNISONE TAB [Suspect]
     Dosage: SOMETIMES MORE THAN 120 MG/DAY
  6. ADALIMUMAB [Suspect]
     Indication: TAKAYASU'S ARTERITIS
     Dosage: UNK
     Dates: start: 20091101
  7. PREDNISONE TAB [Suspect]
     Dosage: 40 MG/DAY
  8. AZATHIOPRINE [Suspect]
     Indication: TAKAYASU'S ARTERITIS
     Dosage: 200 MG/ DAY
  9. INFLIXIMAB [Suspect]
     Dosage: 5 MG/KG, MONTHLY
  10. METHOTREXATE SODIUM [Suspect]
     Indication: TAKAYASU'S ARTERITIS
     Dosage: 7.5 MG, WEEKLY
     Route: 048
  11. MYCOPHENOLATE MOFETIL [Suspect]
     Indication: TAKAYASU'S ARTERITIS
     Dosage: UP TO 3000 MG/DAY
  12. METHOTREXATE SODIUM [Suspect]
     Dosage: UP TO 25 MG/WEEK
     Dates: start: 20060801
  13. CYCLOPHOSPHAMIDE [Suspect]
     Indication: TAKAYASU'S ARTERITIS
     Dosage: UP TO 1500 MG/MONTH
     Route: 042

REACTIONS (4)
  - DRUG INEFFECTIVE [None]
  - DRUG INTOLERANCE [None]
  - TRANSAMINASES INCREASED [None]
  - TAKAYASU'S ARTERITIS [None]
